FAERS Safety Report 8904052 (Version 1)
Quarter: 2012Q4

REPORT INFORMATION
  Report Type: 
  Country: US (occurrence: US)
  Receive Date: 20121112
  Receipt Date: 20121112
  Transmission Date: 20130627
  Serious: No
  Sender: FDA-Public Use
  Company Number: US-TEVA-369580USA

PATIENT

DRUGS (1)
  1. PROAIR HFA [Suspect]
     Dates: start: 20121007

REACTIONS (1)
  - Drug ineffective [Unknown]
